FAERS Safety Report 4652098-3 (Version None)
Quarter: 2005Q2

REPORT INFORMATION
  Report Type: 
  Country: None (occurrence: None)
  Receive Date: 20050502
  Receipt Date: 20050418
  Transmission Date: 20051028
  Serious: Yes (Hospitalization)
  Sender: FDA-Public Use
  Company Number: 2005058169

PATIENT
  Age: 65 Year
  Sex: Female
  Weight: 77.1115 kg

DRUGS (7)
  1. DETROL LA [Suspect]
     Indication: BLADDER DISORDER
     Dosage: 4 MG (4 MG, 1 IN 1 D), ORAL
     Route: 048
     Dates: start: 20000101
  2. LOSARTAN POTASSIUM [Concomitant]
  3. METOPROLOL TARTRATE [Concomitant]
  4. LEVOTHYROXINE SODIUM [Concomitant]
  5. AMITRIPTYLINE HCL [Concomitant]
  6. TOCOPHEROL (TOCOPHEROL) [Concomitant]
  7. MULTIVITAMINS (ASCORBIC ACID, ERGOCALCIFEROL, FOLIC ACID, NICOTINAMIDE [Concomitant]

REACTIONS (2)
  - DRUG INEFFECTIVE [None]
  - KNEE OPERATION [None]
